FAERS Safety Report 5690065-1 (Version None)
Quarter: 2008Q1

REPORT INFORMATION
  Report Type: 
  Country: None (occurrence: None)
  Receive Date: 20080331
  Receipt Date: 20080331
  Transmission Date: 20080703
  Serious: Yes (Life-Threatening, Other)
  Sender: FDA-Public Use
  Company Number: None

PATIENT
  Sex: Male
  Weight: 99.7913 kg

DRUGS (1)
  1. SINGULAIR [Suspect]
     Indication: ACUTE RESPIRATORY DISTRESS SYNDROME
     Dosage: 40 MG DAY
     Dates: start: 20050202, end: 20060601

REACTIONS (1)
  - SUICIDAL BEHAVIOUR [None]
